FAERS Safety Report 7673008-0 (Version None)
Quarter: 2011Q3

REPORT INFORMATION
  Report Type: 
  Country: None (occurrence: None)
  Receive Date: 20110809
  Receipt Date: 20110804
  Transmission Date: 20111222
  Serious: Yes (Hospitalization)
  Sender: FDA-Public Use
  Company Number: US-GILEAD-2011-0041971

PATIENT
  Sex: Female
  Weight: 107.6 kg

DRUGS (24)
  1. LASIX [Concomitant]
  2. IPRATROPIUM BROMIDE [Concomitant]
  3. CALCIUM CARBONATE [Concomitant]
  4. ALPRAZOLAM [Concomitant]
  5. HYDROMORPHONE HCL [Concomitant]
  6. VICODIN [Concomitant]
  7. ENALAPRIL MALEATE [Concomitant]
  8. AMITRIPTYLINE HCL [Concomitant]
  9. FOSAMAX [Concomitant]
  10. DRISDOL [Concomitant]
  11. MAGNESIUM OXIDE [Concomitant]
  12. LETAIRIS [Suspect]
     Indication: CONNECTIVE TISSUE DISORDER
  13. SIMVASTATIN [Concomitant]
  14. ALBUTEROL SULFATE AUTOHALER [Concomitant]
  15. INSULIN GLARGINE [Concomitant]
  16. OMEPRAZOLE [Concomitant]
  17. VITAMIN B-12 [Concomitant]
  18. LETAIRIS [Suspect]
     Indication: PULMONARY HYPERTENSION
     Route: 048
     Dates: start: 20070824
  19. WARFARIN [Concomitant]
  20. ASPART INSULIN [Concomitant]
  21. LIDOCAINE [Concomitant]
  22. COLACE [Concomitant]
  23. PREGABALIN [Concomitant]
  24. PREDNISONE [Concomitant]

REACTIONS (1)
  - RESPIRATORY FAILURE [None]
